FAERS Safety Report 6112373-2 (Version None)
Quarter: 2009Q1

REPORT INFORMATION
  Report Type: 
  Country: None (occurrence: None)
  Receive Date: 20090311
  Receipt Date: 20090311
  Transmission Date: 20090719
  Serious: Yes (Other)
  Sender: FDA-Public Use
  Company Number: None

PATIENT
  Sex: Female
  Weight: 68.9467 kg

DRUGS (1)
  1. LAMOTRIGINE [Suspect]
     Indication: EPILEPSY
     Dosage: 150MG  AM/300MG HS BID PO
     Route: 048
     Dates: start: 20090209, end: 20090226

REACTIONS (4)
  - DIZZINESS [None]
  - LOSS OF CONTROL OF LEGS [None]
  - MUSCLE TWITCHING [None]
  - TREMOR [None]
